FAERS Safety Report 25151607 (Version 3)
Quarter: 2025Q2

REPORT INFORMATION
  Report Type: Spontaneous
  Country: US (occurrence: US)
  Receive Date: 20250402
  Receipt Date: 20250429
  Transmission Date: 20250717
  Serious: No
  Sender: VIIV
  Company Number: US-VIIV HEALTHCARE-US2025037267

PATIENT
  Sex: Male

DRUGS (1)
  1. TRIUMEQ [Suspect]
     Active Substance: ABACAVIR SULFATE\DOLUTEGRAVIR SODIUM\LAMIVUDINE
     Indication: Product used for unknown indication

REACTIONS (1)
  - No adverse event [Unknown]
